FAERS Safety Report 7632559-5 (Version None)
Quarter: 2011Q3

REPORT INFORMATION
  Report Type: 
  Country: None (occurrence: None)
  Receive Date: 20110725
  Receipt Date: 20101013
  Transmission Date: 20111222
  Serious: No
  Sender: FDA-Public Use
  Company Number: US-BRISTOL-MYERS SQUIBB COMPANY-15331317

PATIENT
  Age: 83 Year
  Sex: Female
  Weight: 73 kg

DRUGS (9)
  1. WARFARIN SODIUM [Suspect]
  2. THERAPEUTIC MULTIVITAMINS [Concomitant]
  3. ALLOPURINOL [Concomitant]
  4. ADVAIR DISKUS 100/50 [Concomitant]
     Dosage: 1 DF = 250/50 ONE PUFF HS
  5. COUMADIN [Suspect]
     Indication: CEREBROVASCULAR ACCIDENT
     Dosage: 1DF= TUE/WED:6MG OTHER DAYS OF WEEK:4MG
  6. TOPROL-XL [Concomitant]
     Dosage: 50MG QAM
  7. FOLIC ACID [Concomitant]
  8. SIMVASTATIN [Concomitant]
  9. PROAIR HFA [Concomitant]

REACTIONS (2)
  - WHEEZING [None]
  - INTERNATIONAL NORMALISED RATIO FLUCTUATION [None]
